FAERS Safety Report 7513507-5 (Version None)
Quarter: 2011Q2

REPORT INFORMATION
  Report Type: 
  Country: None (occurrence: None)
  Receive Date: 20110531
  Receipt Date: 20110525
  Transmission Date: 20111010
  Serious: Yes (Other)
  Sender: FDA-Public Use
  Company Number: DE-JNJFOC-20110511527

PATIENT
  Sex: Female
  Weight: 64 kg

DRUGS (6)
  1. PREDNISOLONE [Suspect]
     Indication: RHEUMATOID ARTHRITIS
     Dosage: GESTATIONAL WEEKS 0-35; VARYING DOSAGE, UP TO 30 MG/DAY
     Route: 048
  2. HUMIRA [Concomitant]
     Indication: RHEUMATOID ARTHRITIS
     Dosage: STOPPED 3 MONTHS PRIOR TO PREGNACY
     Route: 058
  3. ACETAMINOPHEN [Concomitant]
     Indication: RHEUMATOID ARTHRITIS
     Dosage: GESTATIONAL WEEK 27-35; 1500-3000 MG/DAY
     Route: 048
  4. FOLIC ACID [Concomitant]
     Indication: PROPHYLAXIS OF NEURAL TUBE DEFECT
     Dosage: GESTATIONAL WEEK 0-33.5
     Route: 048
     Dates: start: 20081115, end: 20090815
  5. IBUPROFEN [Suspect]
     Indication: RHEUMATOID ARTHRITIS
     Dosage: GESTATIONAL WEEKS 16-22
     Route: 048
  6. VOLTAREN [Suspect]
     Indication: RHEUMATOID ARTHRITIS
     Dosage: GESTATION WEEKS 0-27
     Route: 048

REACTIONS (3)
  - OLIGOHYDRAMNIOS [None]
  - PREMATURE LABOUR [None]
  - DRUG EXPOSURE DURING PREGNANCY [None]
